FAERS Safety Report 7893563-5 (Version None)
Quarter: 2011Q4

REPORT INFORMATION
  Report Type: 
  Country: None (occurrence: None)
  Receive Date: 20111104
  Receipt Date: 20111014
  Transmission Date: 20120403
  Serious: Yes (Death, Hospitalization)
  Sender: FDA-Public Use
  Company Number: CA-JNJFOC-20111007858

PATIENT
  Sex: Male

DRUGS (11)
  1. CALCIUM [Concomitant]
  2. ATENOLOL [Concomitant]
  3. LIPITOR [Concomitant]
  4. SYNTHROID [Concomitant]
  5. ASPIRIN [Concomitant]
  6. ASACOL [Concomitant]
  7. RAMIPRIL [Concomitant]
  8. REMICADE [Suspect]
     Indication: COLITIS ULCERATIVE
     Route: 042
     Dates: start: 20110311, end: 20110816
  9. MULTIVITS [Concomitant]
  10. WARFARIN SODIUM [Concomitant]
  11. HYDROCHLOROTHIAZIDE [Concomitant]

REACTIONS (2)
  - DEATH [None]
  - HOSPITALISATION [None]
